FAERS Safety Report 23360633 (Version 2)
Quarter: 2024Q1

REPORT INFORMATION
  Report Type: Spontaneous
  Country: US (occurrence: US)
  Receive Date: 20240103
  Receipt Date: 20240104
  Transmission Date: 20240410
  Serious: No
  Sender: FDA-Public Use
  Company Number: US-ABBVIE-5568666

PATIENT
  Sex: Female

DRUGS (1)
  1. VRAYLAR [Suspect]
     Active Substance: CARIPRAZINE
     Indication: Product used for unknown indication
     Dosage: FORM STRENGTH 1.5 MG
     Route: 048

REACTIONS (5)
  - Feeling abnormal [Unknown]
  - Anxiety [Not Recovered/Not Resolved]
  - Initial insomnia [Unknown]
  - Restlessness [Unknown]
  - Major depression [Unknown]
